FAERS Safety Report 25013134 (Version 1)
Quarter: 2025Q1

REPORT INFORMATION
  Report Type: Spontaneous
  Country: FR (occurrence: FR)
  Receive Date: 20250226
  Receipt Date: 20250226
  Transmission Date: 20250409
  Serious: Yes (Other)
  Sender: MYLAN
  Company Number: None

PATIENT
  Age: 41 Year
  Sex: Male

DRUGS (2)
  1. PREGABALIN [Suspect]
     Active Substance: PREGABALIN
     Indication: Product used for unknown indication
  2. ACETAMINOPHEN\TRAMADOL [Suspect]
     Active Substance: ACETAMINOPHEN\TRAMADOL
     Indication: Product used for unknown indication

REACTIONS (3)
  - Drug use disorder [Unknown]
  - Drug dependence [Unknown]
  - Withdrawal syndrome [Unknown]
